FAERS Safety Report 5907870-6 (Version None)
Quarter: 2008Q4

REPORT INFORMATION
  Report Type: 
  Country: None (occurrence: None)
  Receive Date: 20081003
  Receipt Date: 20080922
  Transmission Date: 20090506
  Serious: Yes (Life-Threatening, Hospitalization)
  Sender: FDA-Public Use
  Company Number: DE-ELI_LILLY_AND_COMPANY-DE200809004966

PATIENT
  Sex: Female

DRUGS (1)
  1. YENTREVE [Suspect]
     Indication: STRESS URINARY INCONTINENCE
     Dosage: 40 MG, 2/D
     Route: 048
     Dates: start: 20080421, end: 20080718

REACTIONS (6)
  - DAYDREAMING [None]
  - DIZZINESS [None]
  - HEMIPARESIS [None]
  - HYPERTENSION [None]
  - INSOMNIA [None]
  - VOMITING [None]
